FAERS Safety Report 8295203-2 (Version None)
Quarter: 2012Q2

REPORT INFORMATION
  Report Type: 
  Country: None (occurrence: None)
  Receive Date: 20120418
  Receipt Date: 20120409
  Transmission Date: 20120825
  Serious: Yes (Other)
  Sender: FDA-Public Use
  Company Number: PT-BAXTER-2012BAX000267

PATIENT
  Sex: Female

DRUGS (9)
  1. CINACALCET HYDROCHLORIDE [Concomitant]
     Route: 065
  2. CALCIUM CARBONATE [Concomitant]
     Route: 065
  3. PHYSIONEAL_1.36% PHYSIONEAL 40_SOLUTION FOR PERITONEAL DIALYSIS_BAG, P [Suspect]
     Route: 033
     Dates: start: 20091128
  4. EXTRANEAL [Suspect]
     Route: 033
     Dates: start: 20091128
  5. LISINOPRIL [Concomitant]
     Route: 065
  6. FUROSEMIDE [Concomitant]
     Route: 065
  7. LETTER [Concomitant]
     Route: 065
  8. AMLODIPINE [Concomitant]
     Route: 065
  9. CARVEDILOL [Concomitant]
     Route: 065

REACTIONS (2)
  - PERITONEAL DIALYSIS COMPLICATION [None]
  - PERITONITIS BACTERIAL [None]
